FAERS Safety Report 18610003 (Version 2)
Quarter: 2020Q4

REPORT INFORMATION
  Report Type: Report from Study
  Country: FR (occurrence: FR)
  Receive Date: 20201214
  Receipt Date: 20201224
  Transmission Date: 20210114
  Serious: Yes (Death, Other)
  Sender: FDA-Public Use
  Company Number: FR-PFIZER INC-2020491568

PATIENT
  Sex: Male

DRUGS (1)
  1. DOCETAXEL. [Suspect]
     Active Substance: DOCETAXEL
     Indication: HORMONE-DEPENDENT PROSTATE CANCER
     Dosage: 75 MG/M2, CYCLIC (FOR 21 D, UP TO NINE CYCLES)
     Route: 042

REACTIONS (2)
  - Neutropenia [Fatal]
  - Infection [Fatal]
